FAERS Safety Report 5418444-8 (Version None)
Quarter: 2007Q3

REPORT INFORMATION
  Report Type: 
  Country: None (occurrence: None)
  Receive Date: 20070718
  Receipt Date: 20070426
  Transmission Date: 20080115
  Serious: Yes (Hospitalization, Other)
  Sender: FDA-Public Use
  Company Number: 2006133768

PATIENT
  Age: 73 Year
  Sex: Male
  Weight: 87.5 kg

DRUGS (2)
  1. CELEBREX [Suspect]
     Indication: PAIN
     Dosage: 200 MG (200 MG, 1 IN 1 D)
     Dates: start: 20020215
  2. VIOXX [Suspect]
     Indication: PAIN MANAGEMENT
     Dosage: 25 MG (25 MG, 1 IN 1 D)
     Dates: start: 20010101

REACTIONS (1)
  - ISCHAEMIC STROKE [None]
